FAERS Safety Report 7600723-7 (Version None)
Quarter: 2011Q3

REPORT INFORMATION
  Report Type: 
  Country: None (occurrence: None)
  Receive Date: 20110711
  Receipt Date: 20110628
  Transmission Date: 20111222
  Serious: Yes (Hospitalization)
  Sender: FDA-Public Use
  Company Number: JP-PFIZER INC-2011153199

PATIENT
  Age: 79 Year
  Sex: Female
  Weight: 43.5 kg

DRUGS (4)
  1. LANSOPRAZOLE [Concomitant]
     Indication: GASTROOESOPHAGEAL REFLUX DISEASE
     Dosage: UNK
  2. UNIPHYL [Concomitant]
     Indication: ASTHMA
     Dosage: UNK
     Route: 048
  3. BISOPROLOL FUMARATE [Concomitant]
     Indication: HYPERTENSION
     Dosage: UNK
     Route: 048
  4. ATORVASTATIN CALCIUM [Suspect]
     Indication: HYPERCHOLESTEROLAEMIA
     Dosage: 10 MG, UID/QD
     Route: 048
     Dates: start: 20101009, end: 20101115

REACTIONS (1)
  - ASTHMA [None]
